FAERS Safety Report 25774277 (Version 1)
Quarter: 2025Q3

REPORT INFORMATION
  Report Type: Spontaneous
  Country: EU (occurrence: EU)
  Receive Date: 20250908
  Receipt Date: 20250908
  Transmission Date: 20251021
  Serious: Yes (Hospitalization)
  Sender: ALCON
  Company Number: EU-ALCON LABORATORIES-ALC2025IT004379

PATIENT

DRUGS (1)
  1. ATROPINE [Suspect]
     Active Substance: ATROPINE
     Indication: Hypermetropia
     Route: 031
     Dates: start: 20250716, end: 20250716

REACTIONS (5)
  - Rash erythematous [Recovering/Resolving]
  - Face oedema [Recovering/Resolving]
  - Erythema of eyelid [Recovering/Resolving]
  - Pharyngeal erythema [Recovering/Resolving]
  - Tonsillar hypertrophy [Recovering/Resolving]

NARRATIVE: CASE EVENT DATE: 20250716
